FAERS Safety Report 23604199 (Version 1)
Quarter: 2024Q1

REPORT INFORMATION
  Report Type: Spontaneous
  Country: US (occurrence: US)
  Receive Date: 20240307
  Receipt Date: 20240307
  Transmission Date: 20240410
  Serious: No
  Sender: FDA-Public Use
  Company Number: US-SANDOZ-SDZ2024US021114

PATIENT
  Age: 68 Year
  Sex: Female

DRUGS (1)
  1. VIVELLE-DOT [Suspect]
     Active Substance: ESTRADIOL
     Indication: Product used for unknown indication
     Dosage: 0.5 MG, TWICE A WEEK
     Route: 062

REACTIONS (3)
  - Hot flush [Unknown]
  - Injection site irritation [Unknown]
  - Product dose omission issue [Unknown]
